FAERS Safety Report 17255532 (Version 4)
Quarter: 2020Q2

REPORT INFORMATION
  Report Type: Report from Study
  Country: JP (occurrence: JP)
  Receive Date: 20200110
  Receipt Date: 20200401
  Transmission Date: 20200713
  Serious: Yes (Hospitalization)
  Sender: FDA-Public Use
  Company Number: JP-CELLTRION INC.-2019JP027764

PATIENT

DRUGS (15)
  1. INFLIXIMAB BS FOR I.V. INFUSION100 MG [NK] [Suspect]
     Active Substance: INFLIXIMAB
     Dosage: 300 MG, QD
     Route: 041
     Dates: start: 20160713
  2. PENTASA [Concomitant]
     Active Substance: MESALAMINE
     Indication: CROHN^S DISEASE
     Dosage: UNK
     Dates: start: 2004
  3. LAC-B [Concomitant]
     Active Substance: BIFIDOBACTERIUM SPP.
     Indication: CROHN^S DISEASE
     Dosage: UNK
     Dates: start: 2004
  4. INFLIXIMAB BS FOR I.V. INFUSION100 MG [NK] [Suspect]
     Active Substance: INFLIXIMAB
     Dosage: 300 MG, QD
     Route: 041
     Dates: start: 20161214, end: 20161214
  5. INFLIXIMAB BS FOR I.V. INFUSION100 MG [NK] [Suspect]
     Active Substance: INFLIXIMAB
     Dosage: 300 MG, QD
     Route: 041
     Dates: start: 20170208, end: 20170208
  6. ELENTAL [Concomitant]
     Active Substance: AMINO ACIDS\CARBOHYDRATES\MINERALS\SOYBEAN OIL\VITAMINS
     Dosage: UNK
     Dates: start: 20170904, end: 20170911
  7. INFLIXIMAB BS FOR I.V. INFUSION100 MG [NK] [Suspect]
     Active Substance: INFLIXIMAB
     Dosage: 300 MG, QD
     Route: 041
     Dates: start: 20160831
  8. INFLIXIMAB BS FOR I.V. INFUSION100 MG [NK] [Suspect]
     Active Substance: INFLIXIMAB
     Dosage: 300 MG, QD
     Route: 041
     Dates: start: 20161026, end: 20161026
  9. MAGLAX [MAGNESIUM SULFATE] [Concomitant]
     Indication: CONSTIPATION
     Dosage: UNK
     Dates: end: 20170902
  10. INFLIXIMAB BS FOR I.V. INFUSION100 MG [NK] [Suspect]
     Active Substance: INFLIXIMAB
     Indication: CROHN^S DISEASE
     Dosage: 300 MG, QD
     Route: 041
     Dates: start: 20160330
  11. POLARAMINE [Concomitant]
     Active Substance: DEXCHLORPHENIRAMINE MALEATE
     Indication: PROPHYLAXIS
     Dosage: UNK
     Dates: start: 20160330
  12. INFLIXIMAB BS FOR I.V. INFUSION100 MG [NK] [Suspect]
     Active Substance: INFLIXIMAB
     Dosage: 300 MG, QD
     Route: 041
     Dates: start: 20170515
  13. INFLIXIMAB BS FOR I.V. INFUSION100 MG [NK] [Suspect]
     Active Substance: INFLIXIMAB
     Dosage: 300 MG, QD
     Route: 041
     Dates: start: 20160518
  14. INFLIXIMAB BS FOR I.V. INFUSION100 MG [NK] [Suspect]
     Active Substance: INFLIXIMAB
     Dosage: 300 MG, QD
     Route: 041
     Dates: start: 20170710, end: 20170710
  15. SOL-MELCORT [Concomitant]
     Active Substance: METHYLPREDNISOLONE SODIUM SUCCINATE
     Indication: PROPHYLAXIS
     Dosage: UNK
     Dates: start: 20160330

REACTIONS (4)
  - Ileus [Recovered/Resolved]
  - Overdose [Unknown]
  - Premature labour [Recovered/Resolved]
  - Maternal exposure during pregnancy [Unknown]

NARRATIVE: CASE EVENT DATE: 20170110
